FAERS Safety Report 6292841-3 (Version None)
Quarter: 2009Q3

REPORT INFORMATION
  Report Type: 
  Country: None (occurrence: None)
  Receive Date: 20090731
  Receipt Date: 20090721
  Transmission Date: 20100115
  Serious: Yes (Disabling)
  Sender: FDA-Public Use
  Company Number: GB-ELI_LILLY_AND_COMPANY-GB200907004307

PATIENT
  Age: 52 Year
  Sex: Male
  Weight: 102.4 kg

DRUGS (10)
  1. BYETTA [Suspect]
     Dosage: 5 UG, UNK
     Route: 058
     Dates: start: 20090527, end: 20090529
  2. AMITRIPTYLINE HCL [Concomitant]
     Dosage: 10 MG, UNK
     Route: 048
  3. DOMPERIDONE [Concomitant]
  4. GLICLAZIDE [Concomitant]
  5. MADOPAR [Concomitant]
     Indication: PARKINSON'S DISEASE
     Dosage: 62.5 MG, UNK
     Route: 048
  6. PROPRANOLOL HYDROCHLORIDE [Concomitant]
  7. SILDENAFIL CITRATE [Concomitant]
  8. SINEMET [Concomitant]
     Indication: PARKINSON'S DISEASE
     Dosage: 125 MG, UNK
     Route: 048
  9. SINEMET [Concomitant]
     Dosage: UNK, 3/D
     Route: 048
  10. METFORMIN [Concomitant]

REACTIONS (1)
  - MUSCLE RIGIDITY [None]
